FAERS Safety Report 14709436 (Version 3)
Quarter: 2018Q4

REPORT INFORMATION
  Report Type: Spontaneous
  Country: US (occurrence: US)
  Receive Date: 20180403
  Receipt Date: 20181130
  Transmission Date: 20190204
  Serious: Yes (Death, Other)
  Sender: FDA-Public Use
  Company Number: US-PFIZER INC-2018079176

PATIENT
  Age: 12 Year
  Sex: Female

DRUGS (2)
  1. ZITHROMAX [Suspect]
     Active Substance: AZITHROMYCIN DIHYDRATE
     Indication: OTITIS MEDIA
     Dosage: UNK
  2. ZITHROMAX [Suspect]
     Active Substance: AZITHROMYCIN DIHYDRATE
     Indication: SINUSITIS

REACTIONS (5)
  - Ventricular fibrillation [Fatal]
  - Contraindicated product administered [Fatal]
  - Atrioventricular block complete [Fatal]
  - Electrocardiogram QT prolonged [Fatal]
  - Torsade de pointes [Fatal]
